FAERS Safety Report 23153239 (Version 1)
Quarter: 2023Q4

REPORT INFORMATION
  Report Type: Spontaneous
  Country: US (occurrence: None)
  Receive Date: 20231106
  Receipt Date: 20231106
  Transmission Date: 20240110
  Serious: No
  Sender: FDA-Public Use
  Company Number: None

PATIENT
  Age: 75 Year
  Sex: Female

DRUGS (1)
  1. CLEAR EYES MAXIMUM ITCHY EYE RELIEF [Suspect]
     Active Substance: GLYCERIN\NAPHAZOLINE HYDROCHLORIDE\ZINC SULFATE
     Indication: Dry eye
     Dosage: OTHER QUANTITY : 2 DROP(S);?FREQUENCY : AS NEEDED;?
     Route: 047
     Dates: start: 20231105, end: 20231105

REACTIONS (2)
  - Eye irritation [None]
  - Eye pruritus [None]

NARRATIVE: CASE EVENT DATE: 20231105
